FAERS Safety Report 17790598 (Version 1)
Quarter: 2020Q2

REPORT INFORMATION
  Report Type: Report from Study
  Country: CA (occurrence: CA)
  Receive Date: 20200514
  Receipt Date: 20200514
  Transmission Date: 20200714
  Serious: Yes (Hospitalization, Other)
  Sender: FDA-Public Use
  Company Number: CA-ASTRAZENECA-2020SE57743

PATIENT
  Age: 27744 Day
  Sex: Male

DRUGS (5)
  1. LUMINA [Concomitant]
     Indication: EYE DISORDER
  2. AZOPT [Concomitant]
     Active Substance: BRINZOLAMIDE
     Indication: GLAUCOMA
  3. LUMINA [Concomitant]
     Indication: OCULAR HYPERAEMIA
  4. CALQUENCE [Suspect]
     Active Substance: ACALABRUTINIB
     Indication: CHRONIC LYMPHOCYTIC LEUKAEMIA
     Route: 048
     Dates: start: 20200409
  5. AZOPT [Concomitant]
     Active Substance: BRINZOLAMIDE
     Indication: EYE DISORDER

REACTIONS (2)
  - Pulmonary oedema [Unknown]
  - Dyspnoea [Unknown]

NARRATIVE: CASE EVENT DATE: 20200411
